FAERS Safety Report 10253249 (Version 5)
Quarter: 2019Q1

REPORT INFORMATION
  Report Type: Spontaneous
  Country: US (occurrence: US)
  Receive Date: 20140623
  Receipt Date: 20190315
  Transmission Date: 20190417
  Serious: Yes (Death, Hospitalization, Other)
  Sender: FDA-Public Use
  Company Number: US-B.I. PHARMACEUTICALS,INC./RIDGEFIELD-2014-BI-27824BP

PATIENT
  Age: 57 Year
  Sex: Male
  Weight: 73.3 kg

DRUGS (9)
  1. ZYBAN [Concomitant]
     Active Substance: BUPROPION HYDROCHLORIDE
     Indication: PRODUCT USED FOR UNKNOWN INDICATION
     Route: 048
  2. VICODIN [Concomitant]
     Active Substance: ACETAMINOPHEN\HYDROCODONE BITARTRATE
     Indication: PRODUCT USED FOR UNKNOWN INDICATION
     Dosage: STRENGTH: 5-500MG; DOSE PER APPLICATION:1 TO 2 TABLETS
     Route: 048
  3. PRADAXA [Suspect]
     Active Substance: DABIGATRAN ETEXILATE MESYLATE
     Indication: ATRIAL FIBRILLATION
     Route: 048
     Dates: start: 20121114, end: 20121129
  4. ASPIRIN. [Concomitant]
     Active Substance: ASPIRIN
     Indication: PRODUCT USED FOR UNKNOWN INDICATION
     Route: 065
  5. DILACOR XR [Concomitant]
     Active Substance: DILTIAZEM HYDROCHLORIDE
     Indication: PRODUCT USED FOR UNKNOWN INDICATION
     Route: 048
  6. NITROSTAT [Concomitant]
     Active Substance: NITROGLYCERIN
     Indication: PRODUCT USED FOR UNKNOWN INDICATION
     Route: 060
  7. LOPRESSOR [Concomitant]
     Active Substance: METOPROLOL TARTRATE
     Indication: PRODUCT USED FOR UNKNOWN INDICATION
     Route: 048
  8. PRINIVIL [Concomitant]
     Active Substance: LISINOPRIL
     Indication: PRODUCT USED FOR UNKNOWN INDICATION
     Route: 048
  9. ULTRAM [Concomitant]
     Active Substance: TRAMADOL HYDROCHLORIDE
     Indication: PRODUCT USED FOR UNKNOWN INDICATION
     Route: 048

REACTIONS (41)
  - Gastric haemorrhage [Fatal]
  - Cardiac arrest [Recovered/Resolved]
  - Left ventricular failure [Recovered/Resolved]
  - Metabolic acidosis [Unknown]
  - Dehydration [Unknown]
  - Brain injury [Fatal]
  - Hypotension [Fatal]
  - Delirium [Unknown]
  - Deafness [Unknown]
  - Physical deconditioning [Fatal]
  - Atelectasis [Unknown]
  - Skin lesion [Unknown]
  - Acute myocardial infarction [Fatal]
  - Generalised oedema [Fatal]
  - Coagulopathy [Unknown]
  - Atrial fibrillation [Unknown]
  - Vertigo [Unknown]
  - Hyperkalaemia [Unknown]
  - Septic shock [Unknown]
  - Adrenal insufficiency [Unknown]
  - Dysphagia [Unknown]
  - Organ failure [Fatal]
  - Pneumonia [Unknown]
  - Congestive cardiomyopathy [Unknown]
  - Urinary retention [Unknown]
  - Malnutrition [Fatal]
  - Hepatic failure [Fatal]
  - Acute pulmonary oedema [Unknown]
  - Cardiogenic shock [Unknown]
  - Systemic candida [Unknown]
  - Ileus [Recovered/Resolved]
  - Hypocalcaemia [Unknown]
  - Gastritis [Unknown]
  - Urinary tract infection [Unknown]
  - Acute respiratory failure [Fatal]
  - Acute kidney injury [Fatal]
  - Shock haemorrhagic [Recovered/Resolved]
  - Pulseless electrical activity [Recovered/Resolved]
  - Staphylococcal sepsis [Unknown]
  - Oesophagitis [Unknown]
  - Atrial septal defect [Unknown]

NARRATIVE: CASE EVENT DATE: 20121129
